FAERS Safety Report 4927941-0 (Version None)
Quarter: 2006Q1

REPORT INFORMATION
  Report Type: 
  Country: None (occurrence: None)
  Receive Date: 20060228
  Receipt Date: 20060217
  Transmission Date: 20060701
  Serious: Yes (Hospitalization)
  Sender: FDA-Public Use
  Company Number: FR-BRISTOL-MYERS SQUIBB COMPANY-13297189

PATIENT
  Age: 71 Year
  Sex: Female

DRUGS (8)
  1. ENDOXAN [Suspect]
     Indication: DRUG USE FOR UNKNOWN INDICATION
     Route: 042
     Dates: start: 20051109, end: 20051109
  2. DOXORUBICIN HCL [Suspect]
     Indication: DRUG USE FOR UNKNOWN INDICATION
     Route: 042
     Dates: start: 20051109, end: 20051109
  3. VINCRISTINE [Suspect]
     Indication: DRUG USE FOR UNKNOWN INDICATION
     Route: 042
     Dates: start: 20051109, end: 20051109
  4. POLARAMINE [Suspect]
     Indication: DRUG USE FOR UNKNOWN INDICATION
     Route: 042
     Dates: start: 20051109, end: 20051109
  5. MABTHERA [Suspect]
     Indication: DRUG USE FOR UNKNOWN INDICATION
     Route: 042
     Dates: start: 20051109, end: 20051109
  6. CORTANCYL [Suspect]
     Indication: DRUG USE FOR UNKNOWN INDICATION
     Route: 048
     Dates: start: 20051110, end: 20051113
  7. SOLU-MEDROL [Concomitant]
  8. ZOPHREN [Concomitant]

REACTIONS (4)
  - INFECTION [None]
  - LIVER ABSCESS [None]
  - LYMPHOMA [None]
  - SEPSIS [None]
